FAERS Safety Report 24435350 (Version 1)
Quarter: 2024Q4

REPORT INFORMATION
  Report Type: Spontaneous
  Country: US (occurrence: US)
  Receive Date: 20241015
  Receipt Date: 20241015
  Transmission Date: 20250115
  Serious: No
  Sender: BIOGEN
  Company Number: US-BIOGEN-2023BI01239102

PATIENT
  Sex: Female
  Weight: 44.19 kg

DRUGS (4)
  1. SKYCLARYS [Suspect]
     Active Substance: OMAVELOXOLONE
     Indication: Friedreich^s ataxia
     Dosage: 50 MILLIGRAM, 3 CAPSULES ONCE DAILY)
     Route: 050
     Dates: start: 20230714
  2. SKYCLARYS [Suspect]
     Active Substance: OMAVELOXOLONE
     Dosage: 50 MILLIGRAM, 3 CAPSULES ONCE DAILY)
     Route: 050
     Dates: start: 20230714
  3. SKYCLARYS [Suspect]
     Active Substance: OMAVELOXOLONE
     Dosage: 50 MILLIGRAM, 3 CAPSULES ONCE DAILY)
     Route: 050
     Dates: start: 20230714
  4. SKYCLARYS [Suspect]
     Active Substance: OMAVELOXOLONE
     Dosage: 50 MILLIGRAM, 3 CAPSULES ONCE DAILY)
     Route: 050
     Dates: start: 20230714

REACTIONS (7)
  - Gait disturbance [Unknown]
  - Product dose omission issue [Unknown]
  - Chest pain [Unknown]
  - Palpitations [Unknown]
  - Balance disorder [Unknown]
  - Fatigue [Unknown]
  - Vitamin D decreased [Unknown]

NARRATIVE: CASE EVENT DATE: 20230101
